FAERS Safety Report 5917649-7 (Version None)
Quarter: 2008Q4

REPORT INFORMATION
  Report Type: 
  Country: None (occurrence: None)
  Receive Date: 20081014
  Receipt Date: 20081006
  Transmission Date: 20090506
  Serious: Yes (Hospitalization)
  Sender: FDA-Public Use
  Company Number: DE-WYE-G02291908

PATIENT
  Sex: Male
  Weight: 75 kg

DRUGS (3)
  1. TREVILOR RETARD [Suspect]
     Dosage: 20 CAPSULES (OVERDOSE AMOUNT 1500 MG)
     Route: 048
     Dates: start: 20081004, end: 20081004
  2. ZOLPIDEM [Suspect]
     Dosage: 20 TABLETS (OVERDOSE AMOUNT 200 MG)
     Route: 048
     Dates: start: 20081004, end: 20081004
  3. OXAZEPAM [Suspect]
     Dosage: 50 TABLETS (OVERDOSE AMOUNT 500 MG)
     Route: 048
     Dates: start: 20081004, end: 20081004

REACTIONS (5)
  - HYPOTHERMIA [None]
  - INTENTIONAL OVERDOSE [None]
  - SOMNOLENCE [None]
  - SUICIDE ATTEMPT [None]
  - SYSTOLIC HYPERTENSION [None]
